FAERS Safety Report 18406353 (Version 2)
Quarter: 2020Q4

REPORT INFORMATION
  Report Type: Report from Study
  Country: US (occurrence: US)
  Receive Date: 20201020
  Receipt Date: 20201030
  Transmission Date: 20210114
  Serious: Yes (Hospitalization, Other)
  Sender: FDA-Public Use
  Company Number: US-BAUSCH-BL-2020-030058

PATIENT
  Age: 71 Year
  Sex: Female

DRUGS (9)
  1. PROPRANOLOL HCL [Concomitant]
     Active Substance: PROPRANOLOL HYDROCHLORIDE
     Indication: PRODUCT USED FOR UNKNOWN INDICATION
     Route: 048
  2. FUROSEMIDE. [Concomitant]
     Active Substance: FUROSEMIDE
     Indication: PRODUCT USED FOR UNKNOWN INDICATION
     Route: 048
  3. SPIRONOLACTONE. [Concomitant]
     Active Substance: SPIRONOLACTONE
     Indication: PRODUCT USED FOR UNKNOWN INDICATION
     Route: 048
  4. BUMEX [Concomitant]
     Active Substance: BUMETANIDE
     Indication: PRODUCT USED FOR UNKNOWN INDICATION
     Dosage: AS DIRECTED
     Route: 048
  5. XIFAXAN [Suspect]
     Active Substance: RIFAXIMIN
     Indication: HEPATIC ENCEPHALOPATHY
     Route: 048
     Dates: start: 201902
  6. LISINOPRIL. [Concomitant]
     Active Substance: LISINOPRIL
     Indication: PRODUCT USED FOR UNKNOWN INDICATION
     Route: 048
  7. LACTULOSE. [Concomitant]
     Active Substance: LACTULOSE
     Indication: PRODUCT USED FOR UNKNOWN INDICATION
     Dosage: 10MG/15 ML SOLUTION
     Route: 048
  8. LACTULOSE. [Concomitant]
     Active Substance: LACTULOSE
     Indication: PRODUCT USED FOR UNKNOWN INDICATION
     Dosage: 10MG/15 ML SYRUP
     Route: 048
  9. POTASSIUM CHLORIDE. [Concomitant]
     Active Substance: POTASSIUM CHLORIDE
     Indication: PRODUCT USED FOR UNKNOWN INDICATION
     Dosage: 20 MEQ PACKET ONE CAPSULE WITH FOOD
     Route: 048

REACTIONS (16)
  - White blood cell count decreased [Unknown]
  - Blood chloride increased [Unknown]
  - Haemoglobin decreased [Unknown]
  - Prothrombin time prolonged [Unknown]
  - Red blood cell count decreased [Unknown]
  - Mean cell haemoglobin increased [Unknown]
  - Blood albumin decreased [Unknown]
  - Ascites [Unknown]
  - Alpha 1 foetoprotein increased [Unknown]
  - Pleural effusion [Unknown]
  - Hepatic encephalopathy [Unknown]
  - Platelet count decreased [Unknown]
  - Haematocrit decreased [Unknown]
  - Inappropriate schedule of product administration [Unknown]
  - Blood bilirubin increased [Unknown]
  - International normalised ratio increased [Unknown]

NARRATIVE: CASE EVENT DATE: 201902
